FAERS Safety Report 11688192 (Version 1)
Quarter: 2015Q4

REPORT INFORMATION
  Report Type: Spontaneous
  Country: FR (occurrence: DE)
  Receive Date: 20151030
  Receipt Date: 20151030
  Transmission Date: 20160304
  Serious: Yes (Hospitalization)
  Sender: FDA-Public Use
  Company Number: DE-ASTRAZENECA-2015SF04906

PATIENT
  Age: 84 Year
  Sex: Male

DRUGS (14)
  1. SALBUTAMOL [Suspect]
     Active Substance: ALBUTEROL
     Route: 055
  2. IPRATROPIUM BROMIDE. [Suspect]
     Active Substance: IPRATROPIUM BROMIDE
     Route: 055
  3. PARACETAMOL [Suspect]
     Active Substance: ACETAMINOPHEN
  4. ALLOPURINOL. [Suspect]
     Active Substance: ALLOPURINOL
     Route: 048
  5. PIPERACILLIN AND TAZOBACTAM [Suspect]
     Active Substance: PIPERACILLIN SODIUM\TAZOBACTAM SODIUM
     Route: 042
  6. PAROXETINE [Suspect]
     Active Substance: PAROXETINE\PAROXETINE HYDROCHLORIDE
     Route: 048
  7. DIGOXIN. [Suspect]
     Active Substance: DIGOXIN
  8. OMEPRAZOLE. [Suspect]
     Active Substance: OMEPRAZOLE
     Route: 048
  9. FLUDROCORTISONE ACETATE. [Suspect]
     Active Substance: FLUDROCORTISONE ACETATE
  10. BUFLOMEDIL HYDROCHLORIDE [Suspect]
     Active Substance: BUFLOMEDIL HYDROCHLORIDE
  11. POLYETHYLENE GLYCOLS [Suspect]
     Active Substance: POLYETHYLENE GLYCOLS
     Dosage: MACROGOL 3350, 10 G DAILY
     Route: 048
  12. WARFARIN SODIUM. [Suspect]
     Active Substance: WARFARIN SODIUM
     Route: 048
  13. LEVOFLOXACIN. [Concomitant]
     Active Substance: LEVOFLOXACIN
  14. AUGMENTIN [Concomitant]
     Active Substance: AMOXICILLIN\CLAVULANATE POTASSIUM
     Dosage: AUGMENTIN ^125^

REACTIONS (5)
  - Acute kidney injury [Unknown]
  - Somnolence [Unknown]
  - Myoclonus [Unknown]
  - Hepatitis [Unknown]
  - Confusional state [Unknown]
